FAERS Safety Report 5212490-5 (Version None)
Quarter: 2007Q1

REPORT INFORMATION
  Report Type: 
  Country: None (occurrence: None)
  Receive Date: 20070118
  Receipt Date: 20070111
  Transmission Date: 20070707
  Serious: Yes (Other)
  Sender: FDA-Public Use
  Company Number: JP-PFIZER INC-2006140011

PATIENT
  Age: 54 Year
  Sex: Male

DRUGS (5)
  1. MINIPRESS [Suspect]
     Route: 048
  2. EXCEGRAN [Suspect]
     Route: 048
  3. TEGRETOL [Suspect]
     Route: 048
  4. ZESTRIL [Suspect]
     Route: 048
  5. URSO [Concomitant]
     Route: 048

REACTIONS (1)
  - PURPURA [None]
